FAERS Safety Report 7262894-4 (Version None)
Quarter: 2011Q1

REPORT INFORMATION
  Report Type: 
  Country: None (occurrence: None)
  Receive Date: 20110130
  Receipt Date: 20100927
  Transmission Date: 20110831
  Serious: No
  Sender: FDA-Public Use
  Company Number: US-ABBOTT-10P-163-0674047-00

PATIENT
  Age: 45 Year
  Sex: Male

DRUGS (4)
  1. SINUS MEDICATION [Concomitant]
     Indication: PRODUCT USED FOR UNKNOWN INDICATION
     Dosage: OCCASIONAL
  2. HUMIRA [Suspect]
     Dates: start: 20100727
  3. BLOOD PRESSURE MEDICATION [Concomitant]
     Indication: PRODUCT USED FOR UNKNOWN INDICATION
  4. HUMIRA [Suspect]
     Indication: PSORIASIS

REACTIONS (2)
  - RASH [None]
  - WRIST FRACTURE [None]
